FAERS Safety Report 19252325 (Version 1)
Quarter: 2021Q2

REPORT INFORMATION
  Report Type: Spontaneous
  Country: US (occurrence: US)
  Receive Date: 20210513
  Receipt Date: 20210513
  Transmission Date: 20210717
  Serious: Yes (Hospitalization)
  Sender: FDA-Public Use
  Company Number: None

PATIENT
  Age: 43 Year
  Sex: Female
  Weight: 71.1 kg

DRUGS (1)
  1. FERRIC GLUCONATE [Suspect]
     Active Substance: FERRIC GLUCONATE TRIHYDRATE
     Indication: IRON DEFICIENCY ANAEMIA
     Route: 040
     Dates: start: 20210509, end: 20210510

REACTIONS (3)
  - Paraesthesia oral [None]
  - Urticaria [None]
  - Lip swelling [None]

NARRATIVE: CASE EVENT DATE: 20210510
